FAERS Safety Report 5598779-9 (Version None)
Quarter: 2008Q1

REPORT INFORMATION
  Report Type: 
  Country: None (occurrence: None)
  Receive Date: 20080122
  Receipt Date: 20080114
  Transmission Date: 20080703
  Serious: Yes (Hospitalization)
  Sender: FDA-Public Use
  Company Number: GB-RANBAXY-2008RR-12569

PATIENT

DRUGS (5)
  1. IBUPROFEN TABLETS BP 200MG [Suspect]
     Indication: INTENTIONAL OVERDOSE
     Dosage: 3-5
     Route: 065
     Dates: start: 20020818
  2. PARACETAMOL CAPSULES 500MG [Suspect]
     Indication: INTENTIONAL OVERDOSE
     Dosage: UNK
     Route: 065
     Dates: start: 20020818
  3. PREDNISOLONE RPG 20MG COMPRIME EFFERVESCENT SECABLE [Suspect]
     Indication: INTENTIONAL OVERDOSE
     Dosage: UNK
     Route: 065
     Dates: start: 20020818
  4. SEROXAT [Suspect]
     Dosage: UNK
     Route: 065
     Dates: start: 20020429
  5. ALCOHOL [Concomitant]
     Indication: INTENTIONAL OVERDOSE
     Dosage: UNK
     Dates: start: 20020818

REACTIONS (10)
  - ABNORMAL DREAMS [None]
  - AGGRESSION [None]
  - ANXIETY [None]
  - DISTURBANCE IN ATTENTION [None]
  - EMOTIONAL DISORDER [None]
  - IRRITABILITY [None]
  - NIGHTMARE [None]
  - OVERDOSE [None]
  - SUICIDE ATTEMPT [None]
  - WITHDRAWAL SYNDROME [None]
